FAERS Safety Report 24140889 (Version 1)
Quarter: 2024Q3

REPORT INFORMATION
  Report Type: Spontaneous
  Country: IE (occurrence: IE)
  Receive Date: 20240726
  Receipt Date: 20240726
  Transmission Date: 20241016
  Serious: Yes (Hospitalization)
  Sender: ACCORD
  Company Number: IE-MLMSERVICE-20240709-PI127203-00185-1

PATIENT
  Age: 69 Year
  Sex: Male
  Weight: 39 kg

DRUGS (4)
  1. ITRACONAZOLE [Suspect]
     Active Substance: ITRACONAZOLE
     Indication: Bronchopulmonary aspergillosis
     Dosage: LONG TERM
     Route: 048
  2. TRANEXAMIC ACID [Concomitant]
     Active Substance: TRANEXAMIC ACID
     Indication: Bronchopulmonary aspergillosis
  3. TRANEXAMIC ACID [Concomitant]
     Active Substance: TRANEXAMIC ACID
     Indication: Tracheobronchomegaly
  4. ITRACONAZOLE [Suspect]
     Active Substance: ITRACONAZOLE
     Indication: Tracheobronchomegaly
     Dosage: LONG TERM
     Route: 048

REACTIONS (1)
  - Clostridium difficile infection [Recovering/Resolving]
